FAERS Safety Report 19614659 (Version 2)
Quarter: 2021Q4

REPORT INFORMATION
  Report Type: Spontaneous
  Country: US (occurrence: US)
  Receive Date: 20210727
  Receipt Date: 20211005
  Transmission Date: 20220303
  Serious: Yes (Other)
  Sender: FDA-Public Use
  Company Number: US-GSKCCFUS-CASE-01117951_AE-65829

PATIENT
  Sex: Female
  Weight: 65 kg

DRUGS (1)
  1. BREO ELLIPTA [Suspect]
     Active Substance: FLUTICASONE FUROATE\VILANTEROL TRIFENATATE
     Indication: Chronic obstructive pulmonary disease
     Dosage: 1 PUFF(S), QD, 100/25 MCG
     Route: 055
     Dates: start: 2019

REACTIONS (4)
  - Cataract [Unknown]
  - Visual impairment [Unknown]
  - Intentional product misuse [Unknown]
  - Intentional dose omission [Unknown]
